FAERS Safety Report 18635310 (Version 1)
Quarter: 2020Q4

REPORT INFORMATION
  Report Type: Spontaneous
  Country: US (occurrence: US)
  Receive Date: 20201218
  Receipt Date: 20201218
  Transmission Date: 20210114
  Serious: No
  Sender: FDA-Public Use
  Company Number: US-REGENERON PHARMACEUTICALS, INC.-2020-24968

PATIENT

DRUGS (6)
  1. METHIMAZOLE. [Concomitant]
     Active Substance: METHIMAZOLE
     Indication: PRODUCT USED FOR UNKNOWN INDICATION
     Dosage: 5 MG, MONDAY - FRIDAY
  2. EYLEA [Suspect]
     Active Substance: AFLIBERCEPT
     Indication: TYPE 2 DIABETES MELLITUS
     Dosage: APPROXIMATELY ONCE A MONTH, IN RIGHT EYE
     Route: 031
  3. EYLEA [Suspect]
     Active Substance: AFLIBERCEPT
     Dosage: APPROXIMATELY ONCE A MONTH, IN RIGHT EYE, LAST DOSE
     Route: 031
     Dates: start: 202002, end: 202002
  4. GLYBURIDE. [Concomitant]
     Active Substance: GLYBURIDE
     Indication: PRODUCT USED FOR UNKNOWN INDICATION
     Dosage: 4 MG
  5. CRESTOR [Concomitant]
     Active Substance: ROSUVASTATIN CALCIUM
     Indication: PRODUCT USED FOR UNKNOWN INDICATION
     Dosage: 20 MG- HALF A TAB
  6. LISINOPRIL. [Concomitant]
     Active Substance: LISINOPRIL
     Indication: PRODUCT USED FOR UNKNOWN INDICATION
     Dosage: 5 MG

REACTIONS (2)
  - Product dose omission issue [Unknown]
  - Off label use [Unknown]
